FAERS Safety Report 20279841 (Version 1)
Quarter: 2022Q1

REPORT INFORMATION
  Report Type: Spontaneous
  Country: CN (occurrence: None)
  Receive Date: 20220103
  Receipt Date: 20220103
  Transmission Date: 20220424
  Serious: No
  Sender: FDA-Public Use
  Company Number: 2021A885203

PATIENT
  Age: 16303 Day
  Sex: Female

DRUGS (1)
  1. DAPAGLIFLOZIN [Suspect]
     Active Substance: DAPAGLIFLOZIN
     Indication: Diabetic nephropathy
     Route: 048
     Dates: start: 20211106, end: 20211109

REACTIONS (2)
  - Ketosis [Recovering/Resolving]
  - Protein urine present [Unknown]

NARRATIVE: CASE EVENT DATE: 20211109
